FAERS Safety Report 22155471 (Version 1)
Quarter: 2023Q1

REPORT INFORMATION
  Report Type: Spontaneous
  Country: US (occurrence: US)
  Receive Date: 20230330
  Receipt Date: 20230330
  Transmission Date: 20230417
  Serious: No
  Sender: FDA-Public Use
  Company Number: US-GSK-US2023AMR044345

PATIENT
  Sex: Female

DRUGS (6)
  1. BENLYSTA [Suspect]
     Active Substance: BELIMUMAB
     Indication: Immune thrombocytopenia
     Dosage: 520 MG
     Route: 042
  2. BENLYSTA [Suspect]
     Active Substance: BELIMUMAB
     Indication: Thrombocytopenia
  3. BENLYSTA [Suspect]
     Active Substance: BELIMUMAB
     Indication: Headache
  4. BENLYSTA [Suspect]
     Active Substance: BELIMUMAB
     Indication: Systemic lupus erythematosus
  5. BENLYSTA [Suspect]
     Active Substance: BELIMUMAB
     Indication: Dysmenorrhoea
  6. BENLYSTA [Suspect]
     Active Substance: BELIMUMAB
     Indication: Palpitations

REACTIONS (2)
  - Headache [Unknown]
  - Product use in unapproved indication [Unknown]
